FAERS Safety Report 16798473 (Version 2)
Quarter: 2020Q4

REPORT INFORMATION
  Report Type: Spontaneous
  Country: US (occurrence: US)
  Receive Date: 20190912
  Receipt Date: 20201014
  Transmission Date: 20210113
  Serious: Yes (Hospitalization, Other)
  Sender: FDA-Public Use
  Company Number: US-SUN PHARMACEUTICAL INDUSTRIES LTD-2019R1-219775

PATIENT
  Age: 48 Year
  Sex: Male

DRUGS (1)
  1. OXYCODONE [Suspect]
     Active Substance: OXYCODONE
     Indication: PRODUCT USED FOR UNKNOWN INDICATION
     Dosage: 160 MILLIGRAM, UNK
     Route: 048

REACTIONS (5)
  - Ischaemia [Unknown]
  - Loss of consciousness [Unknown]
  - Multiple organ dysfunction syndrome [Recovered/Resolved]
  - Deafness neurosensory [Recovered/Resolved]
  - Overdose [Unknown]
